FAERS Safety Report 18614995 (Version 1)
Quarter: 2020Q4

REPORT INFORMATION
  Report Type: Report from Study
  Country: US (occurrence: US)
  Receive Date: 20201214
  Receipt Date: 20201214
  Transmission Date: 20210114
  Serious: Yes (Hospitalization)
  Sender: FDA-Public Use
  Company Number: US-TAKEDA-US202033384

PATIENT
  Sex: Female

DRUGS (9)
  1. GATTEX [Suspect]
     Active Substance: TEDUGLUTIDE\WATER
     Indication: SHORT-BOWEL SYNDROME
     Dosage: 3.3 MILLIGRAM, 1X/DAY:QD
     Route: 058
     Dates: start: 20200325
  2. GATTEX [Suspect]
     Active Substance: TEDUGLUTIDE\WATER
     Dosage: 3.3 MILLIGRAM,QD
     Route: 058
     Dates: start: 202003
  3. TPN [Concomitant]
     Active Substance: AMINO ACIDS\DEXTROSE\ELECTROLYTES NOS\SOYBEAN OIL
     Indication: PRODUCT USED FOR UNKNOWN INDICATION
  4. GATTEX [Suspect]
     Active Substance: TEDUGLUTIDE\WATER
     Indication: SHORT-BOWEL SYNDROME
     Dosage: 3.3 MILLIGRAM, 1X/DAY:QD
     Route: 058
     Dates: start: 20200325
  5. GATTEX [Suspect]
     Active Substance: TEDUGLUTIDE\WATER
     Dosage: 3.3 MILLIGRAM,QD
     Route: 058
     Dates: start: 202003
  6. GATTEX [Suspect]
     Active Substance: TEDUGLUTIDE\WATER
     Dosage: 3.3 MILLIGRAM,QD
     Route: 058
     Dates: start: 202003
  7. GATTEX [Suspect]
     Active Substance: TEDUGLUTIDE\WATER
     Dosage: 3.3 MILLIGRAM,QD
     Route: 058
     Dates: start: 202003
  8. GATTEX [Suspect]
     Active Substance: TEDUGLUTIDE\WATER
     Indication: SHORT-BOWEL SYNDROME
     Dosage: 3.3 MILLIGRAM, 1X/DAY:QD
     Route: 058
     Dates: start: 20200325
  9. GATTEX [Suspect]
     Active Substance: TEDUGLUTIDE\WATER
     Indication: SHORT-BOWEL SYNDROME
     Dosage: 3.3 MILLIGRAM, 1X/DAY:QD
     Route: 058
     Dates: start: 20200325

REACTIONS (5)
  - Hypotension [Unknown]
  - Weight decreased [Unknown]
  - Emotional distress [Unknown]
  - Hospitalisation [Unknown]
  - Fat intolerance [Unknown]
